FAERS Safety Report 7800272-7 (Version None)
Quarter: 2011Q4

REPORT INFORMATION
  Report Type: 
  Country: None (occurrence: None)
  Receive Date: 20111006
  Receipt Date: 20110928
  Transmission Date: 20120403
  Serious: Yes (Hospitalization)
  Sender: FDA-Public Use
  Company Number: JP-GLAXOSMITHKLINE-B0693814A

PATIENT
  Sex: Male
  Weight: 63 kg

DRUGS (11)
  1. SULFAMETHOXAZOLE [Concomitant]
     Indication: PROPHYLAXIS
     Dosage: 400MG PER DAY
     Route: 048
  2. CANDESARTAN CILEXETIL [Concomitant]
     Indication: PROPHYLAXIS
     Dosage: 12MG PER DAY
     Route: 048
  3. PROMACTA [Suspect]
     Indication: IDIOPATHIC THROMBOCYTOPENIC PURPURA
     Dosage: 12.5MG PER DAY
     Route: 048
     Dates: start: 20110105, end: 20110111
  4. PREDNISOLONE [Concomitant]
     Indication: IDIOPATHIC THROMBOCYTOPENIC PURPURA
     Route: 048
     Dates: start: 20110115
  5. ALLOPURINOL [Concomitant]
     Indication: PROPHYLAXIS
     Dosage: 200MG PER DAY
     Route: 048
  6. FUNGIZONE [Concomitant]
     Indication: PROPHYLAXIS
     Dosage: 8ML PER DAY
     Route: 048
  7. PROMACTA [Suspect]
     Dosage: 25MG PER DAY
     Route: 048
     Dates: start: 20110112, end: 20110113
  8. MUCOSTA [Concomitant]
     Indication: PROPHYLAXIS
     Dosage: 300MG PER DAY
     Route: 048
  9. FAMOTIDINE [Concomitant]
     Indication: PROPHYLAXIS
     Dosage: 40MG PER DAY
     Route: 048
  10. POSTERISAN [Concomitant]
     Route: 061
  11. ISODINE GARGLE [Concomitant]
     Indication: PROPHYLAXIS
     Route: 061

REACTIONS (1)
  - PYREXIA [None]
